FAERS Safety Report 5814944-7 (Version None)
Quarter: 2008Q3

REPORT INFORMATION
  Report Type: 
  Country: None (occurrence: None)
  Receive Date: 20080718
  Receipt Date: 20080710
  Transmission Date: 20090109
  Serious: Yes (Hospitalization)
  Sender: FDA-Public Use
  Company Number: PHEH2008US06175

PATIENT
  Age: 61 Year
  Sex: Male

DRUGS (3)
  1. SANDOSTATIN [Suspect]
     Indication: THYMOMA MALIGNANT
  2. BACTRIM DS [Suspect]
     Indication: INFECTION PROPHYLAXIS
     Dosage: 3X/WEEK
  3. PREDNISONE TAB [Concomitant]
     Dosage: 50 MG/DAY

REACTIONS (1)
  - INTERNATIONAL NORMALISED RATIO INCREASED [None]
